FAERS Safety Report 25841197 (Version 1)
Quarter: 2025Q3

REPORT INFORMATION
  Report Type: Spontaneous
  Country: US (occurrence: None)
  Receive Date: 20250923
  Receipt Date: 20250923
  Transmission Date: 20251020
  Serious: Yes (Disabling, Other)
  Sender: FDA-CTU
  Company Number: None

PATIENT
  Age: 63 Year
  Sex: Female
  Weight: 48.6 kg

DRUGS (2)
  1. PROLIA [Suspect]
     Active Substance: DENOSUMAB
     Indication: Osteoporosis
     Dates: start: 20241122, end: 20250523
  2. CLARITIN [Concomitant]
     Active Substance: LORATADINE

REACTIONS (9)
  - Photosensitivity reaction [None]
  - Skin burning sensation [None]
  - Rash pruritic [None]
  - Rash [None]
  - Pollakiuria [None]
  - Dry eye [None]
  - Dry skin [None]
  - Blood cholesterol increased [None]
  - Bronchitis [None]

NARRATIVE: CASE EVENT DATE: 20250701
